FAERS Safety Report 6261633 (Version 4)
Quarter: 2021Q2

REPORT INFORMATION
  Report Type: Report from Study
  Country: KR (occurrence: KR)
  Receive Date: 20070314
  Receipt Date: 20210525
  Transmission Date: 20210717
  Serious: Yes (Death, Other)
  Sender: FDA-Public Use
  Company Number: KR-GILEAD-2007-0011460

PATIENT
  Age: 39 Year
  Sex: Male

DRUGS (5)
  1. ITOPRIDE HYDROCHLORIDE [Concomitant]
     Active Substance: ITOPRIDE HYDROCHLORIDE
     Dates: start: 20061127
  2. ADEFOVIR DIPIVOXIL. [Suspect]
     Active Substance: ADEFOVIR DIPIVOXIL
     Indication: HEPATITIS B
     Route: 048
     Dates: start: 20061122
  3. FURSEMIDE [Concomitant]
     Active Substance: FUROSEMIDE
     Dates: start: 20061122
  4. URSODEOXYCHOLIC ACID [Concomitant]
     Active Substance: URSODIOL
     Dates: start: 20061204
  5. PANTOPRAZOLE [Concomitant]
     Active Substance: PANTOPRAZOLE
     Dates: start: 20061206, end: 20061219

REACTIONS (2)
  - Oesophageal haemorrhage [Fatal]
  - Hepatic failure [Fatal]

NARRATIVE: CASE EVENT DATE: 20061206
